FAERS Safety Report 19496898 (Version 1)
Quarter: 2021Q3

REPORT INFORMATION
  Report Type: Spontaneous
  Country: US (occurrence: US)
  Receive Date: 20210704
  Receipt Date: 20210704
  Transmission Date: 20211014
  Serious: No
  Sender: FDA-Public Use
  Company Number: None

PATIENT
  Age: 55 Year
  Sex: Female
  Weight: 119.25 kg

DRUGS (18)
  1. ROBAXIN [Concomitant]
     Active Substance: METHOCARBAMOL
  2. TRULICITY [Concomitant]
     Active Substance: DULAGLUTIDE
  3. ALDACTONE [Concomitant]
     Active Substance: SPIRONOLACTONE
  4. ACTOS [Concomitant]
     Active Substance: PIOGLITAZONE HYDROCHLORIDE
  5. VIT D?2 [Concomitant]
  6. PROVIGIL [Concomitant]
     Active Substance: MODAFINIL
  7. CALCIUM [Concomitant]
     Active Substance: CALCIUM
  8. ROPINIROLE. [Concomitant]
     Active Substance: ROPINIROLE
  9. LORATADINE. [Concomitant]
     Active Substance: LORATADINE
  10. SERTRALINE HCL TABS [Suspect]
     Active Substance: SERTRALINE HYDROCHLORIDE
     Indication: DEPRESSION
     Dosage: ?          QUANTITY:1 TABLET(S);?
     Route: 048
     Dates: start: 20190620
  11. PANTOPRAZOLE [Concomitant]
     Active Substance: PANTOPRAZOLE
  12. MORPHINE SULFATE. [Concomitant]
     Active Substance: MORPHINE SULFATE
  13. HYDROMORPHONE [Concomitant]
     Active Substance: HYDROMORPHONE
  14. L?THYROXINE [Concomitant]
     Active Substance: LEVOTHYROXINE
  15. SPINE STIMULATOR [Concomitant]
  16. ESTRACE [Concomitant]
     Active Substance: ESTRADIOL
  17. GABAPENTIN. [Concomitant]
     Active Substance: GABAPENTIN
  18. GLIPIZIDE. [Concomitant]
     Active Substance: GLIPIZIDE

REACTIONS (1)
  - Hallucination [None]

NARRATIVE: CASE EVENT DATE: 20190930
